FAERS Safety Report 9023635 (Version 1)
Quarter: 2013Q1

REPORT INFORMATION
  Report Type: Report from Study
  Country: NL (occurrence: NL)
  Receive Date: 20130121
  Receipt Date: 20130121
  Transmission Date: 20140127
  Serious: Yes (Hospitalization)
  Sender: FDA-Public Use
  Company Number: NL-BAXTER-2013BAX002250

PATIENT
  Age: 61 None
  Sex: Female
  Weight: 83 kg

DRUGS (12)
  1. ENDOXAN I.V., POEDER VOOR OPLOSSING VOOR INJECTIE 200, 500, 1000 MG [Suspect]
     Indication: DIFFUSE LARGE B-CELL LYMPHOMA
     Route: 042
     Dates: start: 20110527
  2. ENDOXAN I.V., POEDER VOOR OPLOSSING VOOR INJECTIE 200, 500, 1000 MG [Suspect]
     Route: 042
     Dates: start: 20110527
  3. RITUXIMAB [Suspect]
     Indication: DIFFUSE LARGE B-CELL LYMPHOMA
     Route: 042
     Dates: start: 20110527
  4. RITUXIMAB [Suspect]
     Route: 042
     Dates: start: 20110527
  5. PREDNISONE [Suspect]
     Indication: DIFFUSE LARGE B-CELL LYMPHOMA
     Route: 048
     Dates: start: 20110527
  6. PREDNISONE [Suspect]
     Route: 048
     Dates: start: 20110527
  7. DOXORUBICIN [Suspect]
     Indication: DIFFUSE LARGE B-CELL LYMPHOMA
     Route: 042
     Dates: start: 20110527
  8. DOXORUBICIN [Suspect]
     Route: 042
     Dates: start: 20110527
  9. VINCRISTINE [Suspect]
     Indication: DIFFUSE LARGE B-CELL LYMPHOMA
     Route: 042
     Dates: start: 20110527
  10. VINCRISTINE [Suspect]
     Route: 042
     Dates: start: 20110527
  11. G-CSF [Suspect]
     Indication: DIFFUSE LARGE B-CELL LYMPHOMA
     Route: 058
     Dates: start: 20110528
  12. G-CSF [Suspect]
     Dosage: 0.6 CC
     Route: 058
     Dates: start: 20110528

REACTIONS (2)
  - Chylothorax [Recovered/Resolved]
  - Pneumonia [Recovered/Resolved]
